FAERS Safety Report 7162063-2 (Version None)
Quarter: 2010Q4

REPORT INFORMATION
  Report Type: 
  Country: None (occurrence: None)
  Receive Date: 20101215
  Receipt Date: 20090728
  Transmission Date: 20110411
  Serious: Yes (Hospitalization, Other)
  Sender: FDA-Public Use
  Company Number: SE-PFIZER INC-2009246340

PATIENT
  Age: 51 Year

DRUGS (2)
  1. LYRICA [Suspect]
     Dosage: 4.2 G, UNK
  2. ALCOHOL [Suspect]

REACTIONS (2)
  - AGGRESSION [None]
  - OVERDOSE [None]
